FAERS Safety Report 4490596-6 (Version None)
Quarter: 2004Q4

REPORT INFORMATION
  Report Type: 
  Country: None (occurrence: None)
  Receive Date: 20041102
  Receipt Date: 20040720
  Transmission Date: 20050328
  Serious: Yes (Disabling, Other)
  Sender: FDA-Public Use
  Company Number: US-MERCK-0407USA01716

PATIENT
  Age: 57 Year
  Sex: Female

DRUGS (1)
  1. VIOXX [Suspect]
     Indication: OSTEOARTHRITIS
     Route: 048
     Dates: start: 20030101, end: 20040614

REACTIONS (10)
  - ARTHROPATHY [None]
  - DIARRHOEA [None]
  - FIBROMYALGIA [None]
  - FOOT FRACTURE [None]
  - HYPERCHOLESTEROLAEMIA [None]
  - HYPERTENSION [None]
  - HYPOGLYCAEMIA [None]
  - IRON DEFICIENCY [None]
  - MICROCYTIC ANAEMIA [None]
  - UPPER GASTROINTESTINAL HAEMORRHAGE [None]
